FAERS Safety Report 9256269 (Version 1)
Quarter: 2013Q2

REPORT INFORMATION
  Report Type: Spontaneous
  Country: US (occurrence: US)
  Receive Date: 20130425
  Receipt Date: 20130425
  Transmission Date: 20140414
  Serious: No
  Sender: FDA-Public Use
  Company Number: US-AMGEN-USASP2012063500

PATIENT
  Age: 57 Year
  Sex: Male
  Weight: 101 kg

DRUGS (2)
  1. NEUPOGEN [Suspect]
     Indication: HAEMATOPOIETIC STEM CELL MOBILISATION
     Dosage: UNK
  2. NEULASTA [Suspect]
     Indication: HAEMATOPOIETIC STEM CELL MOBILISATION
     Dosage: 6 MG, UNK
     Route: 058
     Dates: start: 20121004, end: 20121004

REACTIONS (1)
  - Accidental exposure to product [Unknown]
